FAERS Safety Report 25156419 (Version 1)
Quarter: 2025Q2

REPORT INFORMATION
  Report Type: Spontaneous
  Country: US (occurrence: US)
  Receive Date: 20250403
  Receipt Date: 20250403
  Transmission Date: 20250716
  Serious: No
  Sender: SANOFI AVENTIS
  Company Number: US-SA-2025SA093722

PATIENT
  Sex: Male
  Weight: 81.82 kg

DRUGS (10)
  1. DUPIXENT [Suspect]
     Active Substance: DUPILUMAB
     Indication: Asthma
     Dosage: 300 MG, QOW
     Route: 058
  2. PUMPKIN SEED OIL [Concomitant]
     Active Substance: PUMPKIN SEED OIL
  3. BIOTIN [Concomitant]
     Active Substance: BIOTIN
  4. MAGNESIUM [Concomitant]
     Active Substance: MAGNESIUM
  5. GARLIC OIL [Concomitant]
     Active Substance: GARLIC OIL
  6. ALPHA LIPOIC ACID [Concomitant]
     Active Substance: .ALPHA.-LIPOIC ACID
  7. FLAXSEED [Concomitant]
     Active Substance: FLAX SEED
  8. VITAMINS [Concomitant]
     Active Substance: VITAMINS
  9. BLACK CURRANT OIL [RIBES NIGRUM SEED OIL] [Concomitant]
  10. PROBIOTICS NOS [Concomitant]
     Active Substance: PROBIOTICS NOS

REACTIONS (1)
  - Drug ineffective [Unknown]
